FAERS Safety Report 8209289-4 (Version None)
Quarter: 2012Q1

REPORT INFORMATION
  Report Type: 
  Country: None (occurrence: None)
  Receive Date: 20120314
  Receipt Date: 20120305
  Transmission Date: 20120608
  Serious: Yes (Hospitalization)
  Sender: FDA-Public Use
  Company Number: US-BAYER-2012-022469

PATIENT
  Age: 33 Year
  Sex: Female
  Weight: 163.27 kg

DRUGS (3)
  1. ZESTORETIC [Concomitant]
     Dosage: 10/12.5 DAILY
  2. FETRIN [Concomitant]
     Indication: ANAEMIA
     Dosage: UNK UNK, BID
  3. YASMIN [Suspect]
     Indication: MENORRHAGIA
     Dosage: UNK UNK, QD

REACTIONS (1)
  - PULMONARY EMBOLISM [None]
